FAERS Safety Report 8556018-0 (Version None)
Quarter: 2012Q3

REPORT INFORMATION
  Report Type: 
  Country: None (occurrence: None)
  Receive Date: 20120719
  Receipt Date: 20120710
  Transmission Date: 20120928
  Serious: Yes (Disabling, Other)
  Sender: FDA-Public Use
  Company Number: 2012MA008682

PATIENT
  Age: 25 Year
  Sex: Male

DRUGS (4)
  1. FEVERALL [Suspect]
     Dates: start: 20120628
  2. DIAZEPAM [Concomitant]
  3. PROPRANOLOL [Concomitant]
  4. IBUPROFEN [Concomitant]

REACTIONS (2)
  - SPEECH DISORDER [None]
  - DYSARTHRIA [None]
